FAERS Safety Report 8626594 (Version 2)
Quarter: 2012Q4

REPORT INFORMATION
  Report Type: 
  Country: JP (occurrence: JP)
  Receive Date: 20120620
  Receipt Date: 20121128
  Transmission Date: 20130627
  Serious: No
  Sender: FDA-Public Use
  Company Number: JP-ASTRAZENECA-2012SE31722

PATIENT
  Age: 37 Year
  Sex: Female
  Weight: 53 kg

DRUGS (6)
  1. ANAPEINE [Suspect]
     Indication: POSTOPERATIVE ANALGESIA
     Dosage: 20mg(10mL), 224mg(112mL), 200mg(100mL), 200mg(100mL), 100mg(50mL)
     Route: 008
     Dates: start: 20120331, end: 20120402
  2. FENTANYL [Concomitant]
     Indication: POSTOPERATIVE ANALGESIA
     Dosage: 0.5mL, 3.5mL, 2mL, 2mL, 1mL
     Route: 008
     Dates: start: 20120331, end: 20120402
  3. RASENAZOLIN [Concomitant]
     Indication: INFECTION PROPHYLAXIS
     Route: 041
     Dates: start: 20120331, end: 20120402
  4. SEISHOKU [Concomitant]
     Indication: INFECTION PROPHYLAXIS
     Route: 041
     Dates: start: 20120331, end: 20120402
  5. DROLEPTAN [Concomitant]
     Route: 008
     Dates: start: 20120402
  6. XYLOCAINE [Concomitant]
     Route: 008

REACTIONS (2)
  - Feeling abnormal [Recovering/Resolving]
  - Asthenia [Recovering/Resolving]
